FAERS Safety Report 8278970 (Version 2)
Quarter: 2012Q4

REPORT INFORMATION
  Report Type: 
  Country: US (occurrence: None)
  Receive Date: 20111201
  Receipt Date: 20120910
  Transmission Date: 20130627
  Serious: Yes (Hospitalization, Other)
  Sender: FDA-Public Use
  Company Number: 2011AP002726

PATIENT
  Age: 35 Year
  Sex: Female

DRUGS (4)
  1. CYCLOSPORINE [Suspect]
     Indication: RENAL TRANSPLANT
  2. CYCLOSPORINE [Suspect]
     Indication: IMMUNOSUPPRESSION
  3. PREDNISONE [Suspect]
     Indication: RENAL TRANSPLANT
  4. PREDNISONE [Suspect]
     Indication: IMMUNOSUPPRESSION

REACTIONS (8)
  - T-CELL LYMPHOMA [None]
  - B-CELL LYMPHOMA [None]
  - RADIATION SKIN INJURY [None]
  - ARTHROPOD BITE [None]
  - SKIN ULCER [None]
  - ANAEMIA [None]
  - FUSARIUM INFECTION [None]
  - SUPERINFECTION BACTERIAL [None]
